FAERS Safety Report 9784469 (Version 3)
Quarter: 2014Q1

REPORT INFORMATION
  Report Type: Spontaneous
  Country: US (occurrence: US)
  Receive Date: 20131226
  Receipt Date: 20140129
  Transmission Date: 20141002
  Serious: No
  Sender: FDA-Public Use
  Company Number: US-BAXTER-2013BAX050200

PATIENT
  Sex: Male

DRUGS (9)
  1. DIANEAL LOW CALCIUM [Suspect]
     Indication: PERITONEAL DIALYSIS
     Route: 033
  2. DIANEAL LOW CALCIUM [Suspect]
     Indication: PERITONEAL DIALYSIS
     Route: 033
  3. DIANEAL LOW CALCIUM (ULTRABAG) [Suspect]
     Indication: PERITONEAL DIALYSIS
     Route: 033
     Dates: start: 201309
  4. DIANEAL LOW CALCIUM (ULTRABAG) [Suspect]
     Indication: PERITONEAL DIALYSIS
     Route: 033
     Dates: start: 201309
  5. HUMALOG [Concomitant]
     Indication: DIABETES MELLITUS
     Route: 058
     Dates: end: 201312
  6. HUMALOG [Concomitant]
     Route: 058
     Dates: start: 201312
  7. LANTUS [Concomitant]
     Indication: DIABETES MELLITUS
     Route: 058
     Dates: end: 201312
  8. LANTUS [Concomitant]
     Route: 058
     Dates: start: 201312
  9. LANTUS [Concomitant]
     Route: 058
     Dates: start: 201312

REACTIONS (1)
  - Blood glucose increased [Recovering/Resolving]
